FAERS Safety Report 21070225 (Version 1)
Quarter: 2022Q3

REPORT INFORMATION
  Report Type: Spontaneous
  Country: US (occurrence: US)
  Receive Date: 20220712
  Receipt Date: 20220712
  Transmission Date: 20221027
  Serious: No
  Sender: FDA-Public Use
  Company Number: US-MYLANLABS-2022M1048491

PATIENT
  Sex: Male

DRUGS (1)
  1. LIDOCAINE PATCH [Suspect]
     Active Substance: LIDOCAINE
     Indication: Pain
     Dosage: 5 PERCENT, QD (APPLIED ONCE A DAY)
     Route: 003

REACTIONS (3)
  - Product adhesion issue [Unknown]
  - Off label use [Unknown]
  - Product storage error [Unknown]
